FAERS Safety Report 5977988-0 (Version None)
Quarter: 2008Q4

REPORT INFORMATION
  Report Type: 
  Country: None (occurrence: None)
  Receive Date: 20081203
  Receipt Date: 20081126
  Transmission Date: 20090506
  Serious: Yes (Other)
  Sender: FDA-Public Use
  Company Number: JP-ABBOTT-08P-087-0489157-00

PATIENT
  Age: 8 Decade
  Sex: Male

DRUGS (1)
  1. LEUPROLIDE ACETATE [Suspect]
     Indication: PROSTATE CANCER
     Route: 058

REACTIONS (2)
  - INJECTION SITE INDURATION [None]
  - INJECTION SITE SWELLING [None]
